FAERS Safety Report 16388425 (Version 4)
Quarter: 2024Q3

REPORT INFORMATION
  Report Type: Report from Study
  Country: JP (occurrence: JP)
  Receive Date: 20190604
  Receipt Date: 20240716
  Transmission Date: 20241017
  Serious: Yes (Other)
  Sender: ROCHE
  Company Number: US-ROCHE-2105381

PATIENT

DRUGS (17)
  1. TOCILIZUMAB [Suspect]
     Active Substance: TOCILIZUMAB
     Indication: Rheumatoid arthritis
     Route: 065
  2. ABATACEPT [Suspect]
     Active Substance: ABATACEPT
     Indication: Rheumatoid arthritis
     Route: 065
  3. ADALIMUMAB [Suspect]
     Active Substance: ADALIMUMAB\ISOPROPYL ALCOHOL
     Indication: Rheumatoid arthritis
     Route: 065
  4. CERTOLIZUMAB [Suspect]
     Active Substance: CERTOLIZUMAB
     Indication: Rheumatoid arthritis
     Route: 065
  5. ETANERCEPT [Suspect]
     Active Substance: ETANERCEPT
     Indication: Rheumatoid arthritis
     Route: 065
  6. GOLIMUMAB [Suspect]
     Active Substance: GOLIMUMAB
     Indication: Rheumatoid arthritis
     Route: 065
  7. INFLIXIMAB [Suspect]
     Active Substance: INFLIXIMAB
     Indication: Rheumatoid arthritis
     Route: 065
  8. TOFACITINIB [Suspect]
     Active Substance: TOFACITINIB
     Indication: Rheumatoid arthritis
     Route: 065
  9. BARICITINIB [Suspect]
     Active Substance: BARICITINIB
     Indication: Rheumatoid arthritis
     Route: 065
  10. SARILUMAB [Suspect]
     Active Substance: SARILUMAB
     Indication: Rheumatoid arthritis
     Route: 065
  11. PREDNISOLONE [Concomitant]
     Active Substance: PREDNISOLONE
  12. METHOTREXATE [Concomitant]
     Active Substance: METHOTREXATE
  13. SULFASALAZINE [Concomitant]
     Active Substance: SULFASALAZINE
  14. LEFLUNOMIDE [Concomitant]
     Active Substance: LEFLUNOMIDE
  15. BUCILLAMINE [Concomitant]
     Active Substance: BUCILLAMINE
  16. TACROLIMUS [Concomitant]
     Active Substance: TACROLIMUS
  17. IGURATIMOD [Concomitant]
     Active Substance: IGURATIMOD

REACTIONS (9)
  - Lung disorder [Unknown]
  - Cardiovascular disorder [Unknown]
  - Neoplasm malignant [Unknown]
  - Infection [Unknown]
  - Haematotoxicity [Unknown]
  - Renal disorder [Unknown]
  - Skin reaction [Unknown]
  - Hypersensitivity [Unknown]
  - Drug ineffective [Unknown]
